FAERS Safety Report 18080838 (Version 2)
Quarter: 2020Q3

REPORT INFORMATION
  Report Type: Report from Study
  Country: GB (occurrence: GB)
  Receive Date: 20200728
  Receipt Date: 20200910
  Transmission Date: 20201103
  Serious: Yes (Other)
  Sender: FDA-Public Use
  Company Number: NVSC2020GB209731

PATIENT
  Sex: Female

DRUGS (1)
  1. COSENTYX [Suspect]
     Active Substance: SECUKINUMAB
     Indication: ANKYLOSING SPONDYLITIS
     Dosage: 150 MG, QW5 (EVERY 5 WEEKS)
     Route: 058

REACTIONS (4)
  - Dyspnoea [Unknown]
  - Influenza [Unknown]
  - COVID-19 [Unknown]
  - Inappropriate schedule of product administration [Unknown]
